FAERS Safety Report 5014791-2 (Version None)
Quarter: 2006Q2

REPORT INFORMATION
  Report Type: 
  Country: None (occurrence: None)
  Receive Date: 20060531
  Receipt Date: 20060519
  Transmission Date: 20061013
  Serious: Yes (Other)
  Sender: FDA-Public Use
  Company Number: US-ROCHE-448882

PATIENT

DRUGS (1)
  1. INVIRASE [Suspect]
     Indication: DRUG INTOLERANCE
     Route: 065
     Dates: start: 20060115, end: 20060415

REACTIONS (1)
  - DIABETES INSIPIDUS [None]
